FAERS Safety Report 7743525-3 (Version None)
Quarter: 2011Q3

REPORT INFORMATION
  Report Type: 
  Country: None (occurrence: None)
  Receive Date: 20110912
  Receipt Date: 20110901
  Transmission Date: 20111222
  Serious: Yes (Hospitalization)
  Sender: FDA-Public Use
  Company Number: IE-JNJFOC-20110902993

PATIENT
  Sex: Female

DRUGS (7)
  1. SOLPADOL [Concomitant]
  2. DICLOFENAC SODIUM [Concomitant]
  3. CALCIUM CARBONATE [Concomitant]
  4. SIMPONI [Suspect]
     Indication: PSORIATIC ARTHROPATHY
     Route: 058
     Dates: start: 20110202
  5. PLAQUENIL [Concomitant]
  6. RABEPRAZOLE SODIUM [Concomitant]
  7. MOBIC [Concomitant]

REACTIONS (2)
  - BACK PAIN [None]
  - MALAISE [None]
